FAERS Safety Report 5719796-1 (Version None)
Quarter: 2008Q2

REPORT INFORMATION
  Report Type: 
  Country: None (occurrence: None)
  Receive Date: 20080423
  Receipt Date: 20070420
  Transmission Date: 20081010
  Serious: Yes (Hospitalization, Other)
  Sender: FDA-Public Use
  Company Number: 237835

PATIENT
  Age: 72 Year
  Sex: Female

DRUGS (9)
  1. AVASTIN [Suspect]
     Indication: NON-SMALL CELL LUNG CANCER METASTATIC
     Dosage: 15 MG/KG, Q3W
     Dates: start: 20070125
  2. CARBOPLATIN [Concomitant]
  3. TAXOL [Concomitant]
  4. XANAX [Concomitant]
  5. TOPROL-XL [Concomitant]
  6. NEURONTIN [Concomitant]
  7. DURAGESIC-100 [Concomitant]
  8. DILAUDID [Concomitant]
  9. PREVACID [Concomitant]

REACTIONS (1)
  - CEREBROVASCULAR ACCIDENT [None]
